FAERS Safety Report 7118799-2 (Version None)
Quarter: 2010Q4

REPORT INFORMATION
  Report Type: 
  Country: None (occurrence: None)
  Receive Date: 20101123
  Receipt Date: 20100817
  Transmission Date: 20110411
  Serious: No
  Sender: FDA-Public Use
  Company Number: US-KINGPHARMUSA00001-K201001047

PATIENT
  Age: 48 Year
  Sex: Female
  Weight: 65.76 kg

DRUGS (2)
  1. FLECTOR [Suspect]
     Indication: ARTHRALGIA
     Dosage: 2 PATCH, SINGLE
     Route: 061
     Dates: start: 20100101, end: 20100101
  2. FLECTOR [Suspect]
     Dosage: 1 PATCH, EVERY 12 HOURS
     Route: 061
     Dates: end: 20100101

REACTIONS (2)
  - ANXIETY [None]
  - DIZZINESS [None]
